FAERS Safety Report 5113739-X (Version None)
Quarter: 2006Q3

REPORT INFORMATION
  Report Type: 
  Country: None (occurrence: None)
  Receive Date: 20060921
  Receipt Date: 20060921
  Transmission Date: 20061208
  Serious: Yes (Hospitalization)
  Sender: FDA-Public Use
  Company Number: None

PATIENT
  Age: 58 Year
  Sex: Male
  Weight: 79 kg

DRUGS (6)
  1. HEPARIN [Suspect]
     Indication: DEEP VEIN THROMBOSIS
     Dosage: IV INFUSION
     Route: 042
     Dates: start: 20060224, end: 20060227
  2. CEFEPIME [Concomitant]
  3. METRONIDAZOLE [Concomitant]
  4. CHLORHEXIDINE [Concomitant]
  5. DOCUSATE [Concomitant]
  6. SENNA [Concomitant]

REACTIONS (10)
  - ACTIVATED PARTIAL THROMBOPLASTIN TIME PROLONGED [None]
  - BLOOD CREATINE PHOSPHOKINASE INCREASED [None]
  - BLOOD CREATININE INCREASED [None]
  - DECUBITUS ULCER [None]
  - DEEP VEIN THROMBOSIS [None]
  - DUODENAL ULCER [None]
  - FALL [None]
  - HAEMATOCHEZIA [None]
  - RECTAL ULCER [None]
  - SPINAL CORD OEDEMA [None]
